FAERS Safety Report 11096095 (Version 3)
Quarter: 2015Q2

REPORT INFORMATION
  Report Type: Spontaneous
  Country: DE (occurrence: DE)
  Receive Date: 20150507
  Receipt Date: 20150618
  Transmission Date: 20150821
  Serious: Yes (Hospitalization, Other)
  Sender: FDA-Public Use
  Company Number: DE-AMGEN-DEUSP2015025804

PATIENT
  Age: 71 Year
  Sex: Male
  Weight: 83 kg

DRUGS (25)
  1. IRINOTECAN [Suspect]
     Active Substance: IRINOTECAN
     Indication: PANCREATIC CARCINOMA
     Dosage: 180 MG/M2, EVERY 14 DAYS
     Route: 042
     Dates: start: 20150209
  2. LEUCOVORIN                         /00566701/ [Suspect]
     Active Substance: LEUCOVORIN
     Indication: PANCREATIC CARCINOMA
     Dosage: 400 MG/M2, EVERY 14 DAYS
     Route: 042
     Dates: start: 20150209
  3. LEUCOVORIN                         /00566701/ [Suspect]
     Active Substance: LEUCOVORIN
     Indication: PROSTATE CANCER
  4. RITUXIMAB [Concomitant]
     Active Substance: RITUXIMAB
     Indication: PROSTATE CANCER
  5. OXALIPLATIN. [Suspect]
     Active Substance: OXALIPLATIN
     Indication: PROSTATE CANCER
  6. IRINOTECAN [Suspect]
     Active Substance: IRINOTECAN
     Indication: MANTLE CELL LYMPHOMA
  7. 5-FU                               /00098801/ [Suspect]
     Active Substance: FLUOROURACIL
     Indication: MANTLE CELL LYMPHOMA
     Dosage: 2400 MG/M2, UNK
     Route: 042
     Dates: start: 20150209
  8. RITUXIMAB [Concomitant]
     Active Substance: RITUXIMAB
     Indication: PANCREATIC CARCINOMA
  9. CYCLOPHOSPHAMIDE. [Concomitant]
     Active Substance: CYCLOPHOSPHAMIDE
     Indication: NON-HODGKIN^S LYMPHOMA
     Dosage: UNK
  10. PREDNISONE. [Concomitant]
     Active Substance: PREDNISONE
     Indication: NON-HODGKIN^S LYMPHOMA
     Dosage: UNK
  11. ASPIRIN. [Concomitant]
     Active Substance: ASPIRIN
     Indication: PROPHYLAXIS
     Dosage: 300 MG/D
  12. SIMVASTATIN. [Concomitant]
     Active Substance: SIMVASTATIN
     Dosage: 20 MG, 0-0-1
  13. IRINOTECAN [Suspect]
     Active Substance: IRINOTECAN
     Indication: PROSTATE CANCER
  14. RITUXIMAB [Concomitant]
     Active Substance: RITUXIMAB
     Indication: MANTLE CELL LYMPHOMA
  15. DOXORUBICIN [Concomitant]
     Active Substance: DOXORUBICIN
     Indication: NON-HODGKIN^S LYMPHOMA
     Dosage: UNK
  16. NEULASTA [Suspect]
     Active Substance: PEGFILGRASTIM
     Indication: PANCREATIC CARCINOMA
     Dosage: 6 MG, UNK
     Route: 058
     Dates: start: 20130927
  17. OXALIPLATIN. [Suspect]
     Active Substance: OXALIPLATIN
     Indication: PANCREATIC CARCINOMA
     Dosage: 85 MG/M2, EVERY 14 DAYS
     Route: 042
     Dates: start: 20150209
  18. LEUCOVORIN                         /00566701/ [Suspect]
     Active Substance: LEUCOVORIN
     Indication: MANTLE CELL LYMPHOMA
  19. 5-FU                               /00098801/ [Suspect]
     Active Substance: FLUOROURACIL
     Indication: PANCREATIC CARCINOMA
     Dosage: 400 MG/M2, EVERY 14 DAYS
     Route: 040
     Dates: start: 20150209
  20. RITUXIMAB [Concomitant]
     Active Substance: RITUXIMAB
     Indication: NON-HODGKIN^S LYMPHOMA
     Dosage: UNK
  21. BENDAMUSTINE [Concomitant]
     Active Substance: BENDAMUSTINE
     Indication: NON-HODGKIN^S LYMPHOMA
     Dosage: UNK
  22. 5-FU                               /00098801/ [Suspect]
     Active Substance: FLUOROURACIL
     Indication: PROSTATE CANCER
  23. OXALIPLATIN. [Suspect]
     Active Substance: OXALIPLATIN
     Indication: MANTLE CELL LYMPHOMA
  24. ONCOVIN [Concomitant]
     Active Substance: VINCRISTINE SULFATE
     Indication: NON-HODGKIN^S LYMPHOMA
     Dosage: UNK
  25. PANTOPRAZOLE [Concomitant]
     Active Substance: PANTOPRAZOLE SODIUM
     Dosage: UNK, 1-0-0

REACTIONS (8)
  - Dysarthria [Recovered/Resolved]
  - Microangiopathy [Unknown]
  - Mantle cell lymphoma recurrent [Unknown]
  - Nervous system disorder [Unknown]
  - Pancreatic carcinoma recurrent [Unknown]
  - Cerebrovascular accident [Unknown]
  - Aphasia [Recovered/Resolved]
  - Vertebrobasilar insufficiency [Unknown]

NARRATIVE: CASE EVENT DATE: 201412
